FAERS Safety Report 7375682-5 (Version None)
Quarter: 2011Q1

REPORT INFORMATION
  Report Type: 
  Country: None (occurrence: None)
  Receive Date: 20110325
  Receipt Date: 20110318
  Transmission Date: 20110831
  Serious: Yes (Hospitalization)
  Sender: FDA-Public Use
  Company Number: FR-BAXTER-2010BH030285

PATIENT
  Age: 72 Year
  Sex: Female

DRUGS (4)
  1. FLUOROURACIL [Suspect]
     Indication: BREAST CANCER
     Route: 042
     Dates: start: 20101104, end: 20101104
  2. ONDANSETRON, UNSPECIFIED [Suspect]
     Indication: VOMITING
     Route: 042
     Dates: start: 20101104, end: 20101104
  3. EPIRUBICIN HYDROCHLORIDE [Suspect]
     Indication: BREAST CANCER
     Route: 042
     Dates: start: 20101104, end: 20101104
  4. CYCLOPHOSPHAMIDE [Suspect]
     Indication: BREAST CANCER
     Route: 042
     Dates: start: 20101104, end: 20101104

REACTIONS (1)
  - ISCHAEMIC STROKE [None]
